FAERS Safety Report 6018757-5 (Version None)
Quarter: 2008Q4

REPORT INFORMATION
  Report Type: 
  Country: None (occurrence: None)
  Receive Date: 20081222
  Receipt Date: 20081212
  Transmission Date: 20090506
  Serious: No
  Sender: FDA-Public Use
  Company Number: US024635

PATIENT
  Age: 48 Year
  Sex: Female
  Weight: 58.9676 kg

DRUGS (10)
  1. FENTORA [Suspect]
     Indication: PAIN
     Dosage: 800 UG 12 TABLETS DAILY PRN BUCCAL
     Route: 002
     Dates: start: 20050101, end: 20070101
  2. ACTIQ [Concomitant]
  3. KLONOPIN [Concomitant]
  4. SOMA [Concomitant]
  5. AMBIEN [Concomitant]
  6. DURAGESIC-100 [Concomitant]
  7. BUMETANIDE [Concomitant]
  8. POTASSIUM CHLORIDE [Concomitant]
  9. VALTREX [Concomitant]
  10. PYRIDIUM [Concomitant]

REACTIONS (5)
  - DRUG DEPENDENCE [None]
  - DRUG PRESCRIBING ERROR [None]
  - DRUG WITHDRAWAL SYNDROME [None]
  - FLUID RETENTION [None]
  - OVARIAN MASS [None]
